FAERS Safety Report 5091198-3 (Version None)
Quarter: 2006Q3

REPORT INFORMATION
  Report Type: 
  Country: None (occurrence: None)
  Receive Date: 20060829
  Receipt Date: 20060815
  Transmission Date: 20061208
  Serious: Yes (Other)
  Sender: FDA-Public Use
  Company Number: PHBS2006BR12567

PATIENT
  Age: 82 Year
  Sex: Male

DRUGS (4)
  1. ZOLEDRONATE [Suspect]
     Indication: METASTASES TO BONE
     Dosage: 4 MG, UNK
     Route: 042
     Dates: start: 20000101
  2. NATRILIX [Concomitant]
     Indication: HYPERTENSION
     Route: 065
  3. SUSTRATE [Concomitant]
     Indication: HYPERTENSION
     Route: 065
  4. AMIODARONE HCL [Concomitant]
     Indication: ARRHYTHMIA
     Route: 065

REACTIONS (24)
  - ALPHA HAEMOLYTIC STREPTOCOCCAL INFECTION [None]
  - BONE DISORDER [None]
  - CHRONIC SINUSITIS [None]
  - DENTAL DISCOMFORT [None]
  - DENTURE WEARER [None]
  - DYSARTHRIA [None]
  - EATING DISORDER [None]
  - ENANTHEMA [None]
  - FISTULA [None]
  - GINGIVAL SWELLING [None]
  - IMPAIRED HEALING [None]
  - ORAL SOFT TISSUE DISORDER [None]
  - OSTEOMYELITIS [None]
  - OSTEONECROSIS [None]
  - OSTEOSCLEROSIS [None]
  - PAIN [None]
  - PERIODONTAL DISEASE [None]
  - PRIMARY SEQUESTRUM [None]
  - PURULENT DISCHARGE [None]
  - SEQUESTRECTOMY [None]
  - TOOTH EXTRACTION [None]
  - TOOTH LOSS [None]
  - TRISMUS [None]
  - WOUND TREATMENT [None]
